FAERS Safety Report 9612932 (Version 2)
Quarter: 2013Q4

REPORT INFORMATION
  Report Type: Spontaneous
  Country: US (occurrence: US)
  Receive Date: 20131010
  Receipt Date: 20131022
  Transmission Date: 20140711
  Serious: Yes (Hospitalization, Other)
  Sender: FDA-Public Use
  Company Number: US-PFIZER INC-2013290825

PATIENT
  Age: 62 Year
  Sex: Female
  Weight: 82.09 kg

DRUGS (5)
  1. LYRICA [Suspect]
     Indication: NERVE INJURY
     Dosage: 100 MG, 2X/DAY
     Route: 048
     Dates: end: 2013
  2. LYRICA [Suspect]
     Indication: PERIPHERAL NERVE INJURY
  3. IBUPROFEN [Concomitant]
     Dosage: 800 MG, 3X/DAY
  4. TRAMADOL [Concomitant]
     Dosage: 50 MG,EVERY 6 HOURS
     Route: 048
  5. CRESTOR [Concomitant]
     Indication: BLOOD CHOLESTEROL INCREASED
     Dosage: UNK

REACTIONS (2)
  - Gastrointestinal bacterial infection [Unknown]
  - Large intestinal obstruction [Unknown]
